FAERS Safety Report 9838333 (Version 1)
Quarter: 2013Q4

REPORT INFORMATION
  Report Type: Spontaneous
  Country: US (occurrence: None)
  Receive Date: 20131206
  Receipt Date: 20131206
  Transmission Date: 20140711
  Serious: Yes (Hospitalization)
  Sender: FDA-Public Use
  Company Number: 363863

PATIENT
  Age: 22 Year
  Sex: Male
  Weight: 105.7 kg

DRUGS (2)
  1. NOVOLOG [Suspect]
     Indication: DIABETES MELLITUS
     Dosage: UNKNOWN DOSE, SUBCAN.-PUMP
     Route: 058
  2. LIPITOR (ATORVASTATIN CALCIUM) [Concomitant]

REACTIONS (1)
  - Blood glucose increased [None]
